FAERS Safety Report 12428285 (Version 1)
Quarter: 2016Q2

REPORT INFORMATION
  Report Type: Spontaneous
  Country: US (occurrence: None)
  Receive Date: 20160601
  Receipt Date: 20160601
  Transmission Date: 20160815
  Serious: Yes (Hospitalization)
  Sender: FDA-Public Use
  Company Number: None

PATIENT
  Age: 53 Year
  Sex: Female
  Weight: 59 kg

DRUGS (2)
  1. DOXORUBICIN HYDROCHLORIDE. [Suspect]
     Active Substance: DOXORUBICIN HYDROCHLORIDE
     Dosage: DOXORUBICIN HYDROCHLORIDE 398 MG
     Dates: end: 20160513
  2. CYCLOPHOSPHAMIDE. [Suspect]
     Active Substance: CYCLOPHOSPHAMIDE
     Dosage: CYCLOPHOSPHAMIDE 3950 MG
     Dates: end: 20160513

REACTIONS (14)
  - Platelet count decreased [None]
  - Oesophagitis [None]
  - Hypokalaemia [None]
  - Helicobacter infection [None]
  - Neutropenia [None]
  - Haemoglobin decreased [None]
  - Odynophagia [None]
  - Gastrooesophageal reflux disease [None]
  - Anaemia [None]
  - Dehydration [None]
  - Decreased appetite [None]
  - Feeding disorder [None]
  - Nausea [None]
  - Vomiting [None]

NARRATIVE: CASE EVENT DATE: 20160514
